FAERS Safety Report 18556326 (Version 1)
Quarter: 2020Q4

REPORT INFORMATION
  Report Type: Spontaneous
  Country: US (occurrence: US)
  Receive Date: 20201128
  Receipt Date: 20201128
  Transmission Date: 20210114
  Serious: Yes (Life-Threatening, Other)
  Sender: FDA-Public Use
  Company Number: US-009507513-2011USA014402

PATIENT
  Age: 56 Year
  Sex: Female
  Weight: 62.1 kg

DRUGS (5)
  1. PRINIVIL [Suspect]
     Active Substance: LISINOPRIL
     Indication: HYPERTENSION
     Dosage: UNK
     Route: 048
     Dates: end: 2012
  2. HYDROCHLOROTHIAZIDE. [Concomitant]
     Active Substance: HYDROCHLOROTHIAZIDE
     Indication: BLOOD PRESSURE ABNORMAL
     Dosage: 25 MICROGRAM, QD
     Route: 048
     Dates: start: 2012
  3. SYMBICORT [Suspect]
     Active Substance: BUDESONIDE\FORMOTEROL FUMARATE DIHYDRATE
     Indication: CHRONIC OBSTRUCTIVE PULMONARY DISEASE
     Dosage: DOSE: 2 (UNITS NOT REPORTED), QD,320 MICROGRAM, TWO TIMES A DAY
     Route: 055
     Dates: end: 201409
  4. ESTRADIOL. [Concomitant]
     Active Substance: ESTRADIOL
     Indication: HORMONE LEVEL ABNORMAL
     Dosage: 1 MILLIGRAM, QD
     Route: 048
     Dates: start: 2012
  5. SYMBICORT [Suspect]
     Active Substance: BUDESONIDE\FORMOTEROL FUMARATE DIHYDRATE
     Indication: ASTHMA
     Dosage: DOSE: 2 (UNITS NOT REPORTED), QD,320 MICROGRAM, TWO TIMES A DAY
     Route: 055
     Dates: end: 201409

REACTIONS (14)
  - Insomnia [Not Recovered/Not Resolved]
  - Crohn^s disease [Unknown]
  - Loss of consciousness [Recovered/Resolved]
  - Burning sensation [Not Recovered/Not Resolved]
  - Diarrhoea [Not Recovered/Not Resolved]
  - Drug hypersensitivity [Unknown]
  - Intentional product misuse [Not Recovered/Not Resolved]
  - Swelling face [Recovered/Resolved]
  - Dyspnoea [Not Recovered/Not Resolved]
  - Anaphylactic shock [Recovered/Resolved]
  - Arthralgia [Not Recovered/Not Resolved]
  - Electrolyte imbalance [Unknown]
  - Abdominal pain [Not Recovered/Not Resolved]
  - Alopecia [Not Recovered/Not Resolved]

NARRATIVE: CASE EVENT DATE: 2012
